FAERS Safety Report 13471324 (Version 3)
Quarter: 2017Q2

REPORT INFORMATION
  Report Type: Report from Study
  Country: FR (occurrence: FR)
  Receive Date: 20170424
  Receipt Date: 20170525
  Transmission Date: 20170830
  Serious: Yes (Hospitalization, Other)
  Sender: FDA-Public Use
  Company Number: PHHY2016FR155131

PATIENT
  Age: 51 Year
  Sex: Male
  Weight: 41.6 kg

DRUGS (1)
  1. ZARZIO [Suspect]
     Active Substance: FILGRASTIM
     Indication: PRODUCT USED FOR UNKNOWN INDICATION
     Dosage: 30 MIU /0. 5 ML, QD
     Route: 058
     Dates: start: 20151201

REACTIONS (3)
  - Neutropenia [Recovered/Resolved]
  - Neutropenia [Unknown]
  - Faecaloma [Recovered/Resolved]

NARRATIVE: CASE EVENT DATE: 20160102
